FAERS Safety Report 9353806 (Version 3)
Quarter: 2013Q4

REPORT INFORMATION
  Report Type: Report from Study
  Country: GB (occurrence: GB)
  Receive Date: 20130618
  Receipt Date: 20131009
  Transmission Date: 20140711
  Serious: Yes (Death, Hospitalization, Other)
  Sender: FDA-Public Use
  Company Number: GB-CELGENEUS-167-20785-13060791

PATIENT
  Age: 84 Year
  Sex: Male

DRUGS (8)
  1. THALIDOMIDE [Suspect]
     Indication: PLASMA CELL MYELOMA
     Dosage: 150 MILLIGRAM
     Route: 048
     Dates: start: 20100927
  2. THALIDOMIDE [Suspect]
     Route: 048
  3. THALIDOMIDE [Suspect]
     Route: 048
  4. THALIDOMIDE [Suspect]
     Route: 048
  5. THALIDOMIDE [Suspect]
     Route: 048
  6. THALIDOMIDE [Suspect]
     Route: 048
     Dates: end: 20110402
  7. CYCLOPHOSPHAMIDE [Suspect]
     Indication: PLASMA CELL MYELOMA
     Dosage: 500 MILLIGRAM
     Route: 048
     Dates: start: 20100927
  8. DEXAMETHASONE [Suspect]
     Indication: PLASMA CELL MYELOMA
     Dosage: 20 MILLIGRAM
     Route: 048
     Dates: start: 20100927

REACTIONS (2)
  - Bladder transitional cell carcinoma stage III [Fatal]
  - Cardiac failure [Fatal]
